FAERS Safety Report 10803611 (Version 2)
Quarter: 2015Q1

REPORT INFORMATION
  Report Type: Report from Study
  Country: KR (occurrence: KR)
  Receive Date: 20150217
  Receipt Date: 20150309
  Transmission Date: 20150721
  Serious: Yes (Hospitalization)
  Sender: FDA-Public Use
  Company Number: KR-PURDUE PHARMA-DEU-2015-0016305

PATIENT
  Age: 51 Year
  Sex: Male
  Weight: 80.6 kg

DRUGS (8)
  1. OXYCODONE HCL/NALOXONE HCL CR TAB [Suspect]
     Active Substance: NALOXONE HYDROCHLORIDE\OXYCODONE HYDROCHLORIDE
     Dosage: 10 MG, UNK
     Route: 048
     Dates: start: 20140416, end: 20140416
  2. CELEBREX [Concomitant]
     Active Substance: CELECOXIB
     Indication: NEURALGIA
     Dosage: 1 CAPSL, UNK
     Route: 048
     Dates: start: 20140623, end: 20140630
  3. OXYCODONE HCL/NALOXONE HCL CR TAB [Suspect]
     Active Substance: NALOXONE HYDROCHLORIDE\OXYCODONE HYDROCHLORIDE
     Dosage: 30 MG, UNK
     Route: 048
     Dates: start: 20140626, end: 20140627
  4. OXYCODONE HCL/NALOXONE HCL CR TAB [Suspect]
     Active Substance: NALOXONE HYDROCHLORIDE\OXYCODONE HYDROCHLORIDE
     Dosage: 20 MG, UNK
     Route: 048
     Dates: start: 20140421, end: 20140625
  5. ASPIRIN. [Concomitant]
     Active Substance: ASPIRIN
     Indication: PLASMA CELL MYELOMA
     Dosage: 1 TABLET, DAILY
     Route: 048
     Dates: start: 20140421, end: 20140714
  6. OXYCODONE HCL/NALOXONE HCL CR TAB [Suspect]
     Active Substance: NALOXONE HYDROCHLORIDE\OXYCODONE HYDROCHLORIDE
     Dosage: 40 MG, UNK
     Route: 048
     Dates: start: 20140628, end: 20140818
  7. IRCODON IR TABLETS 5MG [Concomitant]
     Indication: PAIN
     Dosage: 20 MG, DAILY
     Route: 048
     Dates: start: 20140416
  8. OXYCODONE HCL/NALOXONE HCL CR TAB [Suspect]
     Active Substance: NALOXONE HYDROCHLORIDE\OXYCODONE HYDROCHLORIDE
     Indication: PAIN
     Dosage: UNK MG, UNK
     Route: 048
     Dates: start: 20140825

REACTIONS (1)
  - Neuropathy peripheral [Recovered/Resolved]

NARRATIVE: CASE EVENT DATE: 20140619
